FAERS Safety Report 20845855 (Version 1)
Quarter: 2022Q2

REPORT INFORMATION
  Report Type: Spontaneous
  Country: US (occurrence: US)
  Receive Date: 20220518
  Receipt Date: 20220518
  Transmission Date: 20220721
  Serious: No
  Sender: FDA-Public Use
  Company Number: US-PFIZER INC-202101664125

PATIENT
  Age: 62 Year
  Sex: Female
  Weight: 72.57 kg

DRUGS (3)
  1. XALATAN [Suspect]
     Active Substance: LATANOPROST
     Indication: Glaucoma
     Dosage: 2.5 ML
  2. XALATAN [Suspect]
     Active Substance: LATANOPROST
     Dosage: 2.5 ML
  3. XALATAN [Suspect]
     Active Substance: LATANOPROST
     Dosage: 2 DROP, DAILY (125MCG/2.5 ML, ONE DROP IN EACH EYE AT NIGHT)
     Route: 047

REACTIONS (1)
  - Visual impairment [Unknown]
